FAERS Safety Report 7046018-4 (Version None)
Quarter: 2010Q4

REPORT INFORMATION
  Report Type: 
  Country: None (occurrence: None)
  Receive Date: 20101014
  Receipt Date: 20101008
  Transmission Date: 20110411
  Serious: Yes (Death, Hospitalization)
  Sender: FDA-Public Use
  Company Number: BR-MEDIMMUNE-MEDI-0011597

PATIENT
  Sex: Male
  Weight: 6.3 kg

DRUGS (1)
  1. SYNAGIS [Suspect]
     Route: 030
     Dates: start: 20100301, end: 20100301

REACTIONS (4)
  - CRYING [None]
  - HEPATOMEGALY [None]
  - PNEUMONIA [None]
  - RESPIRATORY FAILURE [None]
